FAERS Safety Report 7828701-3 (Version None)
Quarter: 2011Q3

REPORT INFORMATION
  Report Type: 
  Country: None (occurrence: None)
  Receive Date: 20110901
  Receipt Date: 20110211
  Transmission Date: 20111222
  Serious: Yes (Hospitalization, Other)
  Sender: FDA-Public Use
  Company Number: 240396USA

PATIENT
  Sex: Female

DRUGS (1)
  1. METOCLOPRAMIDE [Suspect]

REACTIONS (11)
  - DYSKINESIA [None]
  - PSYCHIATRIC SYMPTOM [None]
  - DYSGRAPHIA [None]
  - TARDIVE DYSKINESIA [None]
  - IMPAIRED DRIVING ABILITY [None]
  - GENERAL PHYSICAL CONDITION [None]
  - HYPERSENSITIVITY [None]
  - SPEECH DISORDER [None]
  - BALANCE DISORDER [None]
  - ACTIVITIES OF DAILY LIVING IMPAIRED [None]
  - GENERAL PHYSICAL CONDITION ABNORMAL [None]
